FAERS Safety Report 4829178-2 (Version None)
Quarter: 2005Q4

REPORT INFORMATION
  Report Type: 
  Country: None (occurrence: None)
  Receive Date: 20051028
  Receipt Date: 20050718
  Transmission Date: 20060501
  Serious: No
  Sender: FDA-Public Use
  Company Number: COT_0147_2005

PATIENT
  Age: 58 Year
  Sex: Female
  Weight: 95.2554 kg

DRUGS (1)
  1. VENTAVIS [Suspect]
     Indication: PULMONARY HYPERTENSION
     Dosage: 5 MCG 6XD IH
     Route: 055
     Dates: start: 20050714

REACTIONS (3)
  - COUGH [None]
  - FLUSHING [None]
  - THROAT IRRITATION [None]
